FAERS Safety Report 17198455 (Version 3)
Quarter: 2019Q4

REPORT INFORMATION
  Report Type: Spontaneous
  Country: US (occurrence: US)
  Receive Date: 20191225
  Receipt Date: 20191227
  Transmission Date: 20200122
  Serious: No
  Sender: FDA-Public Use
  Company Number: US-TEVA-2019-US-1156970

PATIENT
  Sex: Female

DRUGS (1)
  1. TEMAZEPAM TEVA [Suspect]
     Active Substance: TEMAZEPAM
     Route: 065

REACTIONS (6)
  - Blood pressure increased [Unknown]
  - Drug ineffective [Unknown]
  - Product substitution issue [Unknown]
  - Product physical issue [Unknown]
  - Reaction to excipient [Unknown]
  - Influenza like illness [Unknown]
